FAERS Safety Report 4482188-X (Version None)
Quarter: 2004Q4

REPORT INFORMATION
  Report Type: 
  Country: None (occurrence: None)
  Receive Date: 20041020
  Receipt Date: 20041008
  Transmission Date: 20050328
  Serious: Yes (Hospitalization)
  Sender: FDA-Public Use
  Company Number: K200401540

PATIENT
  Age: 58 Year
  Sex: Female

DRUGS (6)
  1. ALTACE [Suspect]
     Indication: HYPERTONIA
     Dosage: 10 MG, QD, ORAL
     Route: 048
     Dates: end: 20040201
  2. VIOXXAKUT (ROFECOXIB) 50MG [Suspect]
     Indication: PROPHYLAXIS
     Dosage: 50 MG, QD, ORAL
     Route: 048
     Dates: start: 20040223, end: 20040223
  3. DICLOCIL (DICLOXACILLIN SODIUM MONOHYDRATE) 6 G [Suspect]
     Indication: PROPHYLAXIS
     Dosage: 6 G, QD, INTRAVENOUS
     Route: 042
     Dates: start: 20040223, end: 20040223
  4. ACETAMINOPHEN [Concomitant]
  5. PROPOXYPHENE HCL [Concomitant]
  6. INNOHEP [Concomitant]

REACTIONS (5)
  - INTERMITTENT CLAUDICATION [None]
  - POST PROCEDURAL COMPLICATION [None]
  - RENAL FAILURE [None]
  - RENAL TUBULAR NECROSIS [None]
  - VASCULAR OCCLUSION [None]
